FAERS Safety Report 8025023 (Version 2)
Quarter: 2012Q4

REPORT INFORMATION
  Report Type: 
  Country: JP (occurrence: JP)
  Receive Date: 20110707
  Receipt Date: 20121005
  Transmission Date: 20130627
  Serious: Yes (Hospitalization, Other)
  Sender: FDA-Public Use
  Company Number: JP-MILLENNIUM PHARMACEUTICALS, INC.-2011-02539

PATIENT

DRUGS (2)
  1. VELCADE [Suspect]
     Indication: MULTIPLE MYELOMA
     Dosage: 1.8 mg, UNK
     Route: 042
     Dates: start: 20110414, end: 20110425
  2. DECADRON                           /00016001/ [Concomitant]
     Indication: MULTIPLE MYELOMA
     Dosage: 40 mg, UNK

REACTIONS (8)
  - Polyarteritis nodosa [Recovering/Resolving]
  - Respiratory depression [Unknown]
  - Neuropathy peripheral [Recovering/Resolving]
  - Mononeuropathy multiplex [Unknown]
  - Chest discomfort [Recovering/Resolving]
  - Chest discomfort [Unknown]
  - Diarrhoea [Recovered/Resolved]
  - Malaise [Unknown]
